FAERS Safety Report 11414868 (Version 4)
Quarter: 2015Q4

REPORT INFORMATION
  Report Type: Spontaneous
  Country: US (occurrence: US)
  Receive Date: 20150825
  Receipt Date: 20151009
  Transmission Date: 20160304
  Serious: Yes (Other)
  Sender: FDA-Public Use
  Company Number: US-DRREDDYS-USA/USA/15/0050217

PATIENT
  Age: 50 Year
  Sex: Male

DRUGS (4)
  1. DESITIN [Suspect]
     Active Substance: ZINC OXIDE
     Indication: ECZEMA
     Route: 061
  2. CLODERM [Suspect]
     Active Substance: CLOCORTOLONE PIVALATE
     Route: 061
     Dates: start: 201508, end: 201508
  3. DESITIN [Suspect]
     Active Substance: ZINC OXIDE
     Indication: PSORIASIS
  4. CLODERM [Suspect]
     Active Substance: CLOCORTOLONE PIVALATE
     Indication: PSORIASIS
     Route: 061
     Dates: end: 201505

REACTIONS (6)
  - Cushing^s syndrome [Not Recovered/Not Resolved]
  - Local swelling [Recovering/Resolving]
  - Drug ineffective [Unknown]
  - Product quality issue [Unknown]
  - Swelling face [Recovering/Resolving]
  - Weight decreased [Not Recovered/Not Resolved]

NARRATIVE: CASE EVENT DATE: 201505
